FAERS Safety Report 14238915 (Version 1)
Quarter: 2017Q4

REPORT INFORMATION
  Report Type: Spontaneous
  Country: US (occurrence: None)
  Receive Date: 20171129
  Receipt Date: 20171129
  Transmission Date: 20180321
  Serious: Yes (Death)
  Sender: FDA-Public Use
  Company Number: None

PATIENT
  Age: 70 Year
  Sex: Male
  Weight: 101.2 kg

DRUGS (20)
  1. IBUPROFEN. [Concomitant]
     Active Substance: IBUPROFEN
  2. CALCIUM CARBONATE (TUMS) [Concomitant]
  3. ZOLOFT [Concomitant]
     Active Substance: SERTRALINE HYDROCHLORIDE
  4. REGORAFENIB 40 MG TABLET [Suspect]
     Active Substance: REGORAFENIB
     Indication: RECTAL CANCER
     Route: 048
     Dates: start: 20170907, end: 20170927
  5. ACYCLOVIR (ZOVIRAX) [Concomitant]
  6. ATIVAN [Concomitant]
     Active Substance: LORAZEPAM
  7. REGORAFENIB 40 MG TABLET [Suspect]
     Active Substance: REGORAFENIB
     Indication: RECTAL CANCER
     Route: 048
     Dates: start: 20170809, end: 20170819
  8. FLUTICASONE. [Concomitant]
     Active Substance: FLUTICASONE
  9. LIDOCAINE-PRILOCAINE (EMLA) CREAM [Concomitant]
  10. LORATADINE (CLARITIN) [Concomitant]
  11. CALCIPOTRIENE. [Concomitant]
     Active Substance: CALCIPOTRIENE
  12. MULTIPLE VITAMIN (MULTIVITAMN) [Concomitant]
  13. PROCHLORPERAZINE (COMPAZINE) [Concomitant]
  14. DILTIAZEM (CARDIZEM LA, MATZIM LA) [Concomitant]
  15. CHOLECALCIFEROL [Concomitant]
     Active Substance: CHOLECALCIFEROL
  16. CARTIA XT [Concomitant]
     Active Substance: DILTIAZEM HYDROCHLORIDE
  17. POTASSIUM CHLORIDE SA (KLOR-CON M20) [Concomitant]
  18. KETOCONAZOLE (NIZORAL) [Concomitant]
  19. LEVOTHYROXINE (SYNTHROID, LEVOTHROID) [Concomitant]
  20. GLUCOSAMINE-CHONDROITIN [Concomitant]
     Active Substance: CHONDROITIN SULFATE (BOVINE)\GLUCOSAMINE SULFATE

REACTIONS (5)
  - Disease progression [None]
  - Asthenia [None]
  - Stoma site haemorrhage [None]
  - Abdominal pain [None]
  - Pain [None]

NARRATIVE: CASE EVENT DATE: 20171119
